FAERS Safety Report 21251795 (Version 1)
Quarter: 2022Q3

REPORT INFORMATION
  Report Type: Spontaneous
  Country: US (occurrence: US)
  Receive Date: 20220825
  Receipt Date: 20220825
  Transmission Date: 20221027
  Serious: No
  Sender: FDA-Public Use
  Company Number: US-BIOGEN-2022BI01150494

PATIENT
  Sex: Female

DRUGS (8)
  1. TECFIDERA [Suspect]
     Active Substance: DIMETHYL FUMARATE
     Indication: Multiple sclerosis
     Route: 050
  2. OCREVUS [Concomitant]
     Active Substance: OCRELIZUMAB
     Route: 050
  3. METHENAMINE [Concomitant]
     Active Substance: METHENAMINE
     Route: 050
  4. COLACE [Concomitant]
     Active Substance: DOCUSATE SODIUM
     Route: 050
  5. SENNA [Concomitant]
     Active Substance: SENNA LEAF\SENNOSIDES\SENNOSIDES A AND B
     Route: 050
  6. TEMAZEPAM [Concomitant]
     Active Substance: TEMAZEPAM
     Route: 050
  7. ZYRTEC [Concomitant]
     Active Substance: CETIRIZINE HYDROCHLORIDE
     Route: 050
  8. SUDAFED [Concomitant]
     Active Substance: PSEUDOEPHEDRINE HYDROCHLORIDE
     Route: 050

REACTIONS (1)
  - Multiple sclerosis [Unknown]
